FAERS Safety Report 20365722 (Version 1)
Quarter: 2022Q1

REPORT INFORMATION
  Report Type: Spontaneous
  Country: GB (occurrence: GB)
  Receive Date: 20220123
  Receipt Date: 20220123
  Transmission Date: 20220424
  Serious: Yes (Life-Threatening, Hospitalization)
  Sender: FDA-Public Use
  Company Number: None

PATIENT
  Age: 72 Year
  Sex: Male
  Weight: 62 kg

DRUGS (4)
  1. ZYTIGA [Suspect]
     Active Substance: ABIRATERONE ACETATE
     Indication: Prostate cancer metastatic
     Route: 048
  2. GOSERELIN [Concomitant]
     Active Substance: GOSERELIN
     Indication: Ill-defined disorder
     Route: 065
  3. PREDNISOLONE [Concomitant]
     Active Substance: PREDNISOLONE
     Indication: Ill-defined disorder
     Route: 065
  4. TAMSULOSIN [Concomitant]
     Active Substance: TAMSULOSIN
     Indication: Ill-defined disorder
     Route: 065

REACTIONS (4)
  - Hypokalaemia [Not Recovered/Not Resolved]
  - Electrocardiogram abnormal [Unknown]
  - Proteinuria [Unknown]
  - Hypervolaemia [Unknown]
